FAERS Safety Report 21687135 (Version 1)
Quarter: 2022Q4

REPORT INFORMATION
  Report Type: Spontaneous
  Country: CZ (occurrence: CZ)
  Receive Date: 20221206
  Receipt Date: 20221206
  Transmission Date: 20230112
  Serious: Yes (Hospitalization, Other)
  Sender: FDA-Public Use
  Company Number: None

PATIENT
  Age: 46 Year
  Sex: Male

DRUGS (6)
  1. METHOTREXATE [Suspect]
     Active Substance: METHOTREXATE
     Indication: Psoriasis
     Dosage: DISCONTINUED DUE TO SEPSIS?1-0-1
  2. ADALIMUMAB [Suspect]
     Active Substance: ADALIMUMAB
     Indication: Psoriasis
     Dates: start: 20190502, end: 20220901
  3. EMPAGLIFLOZIN [Concomitant]
     Active Substance: EMPAGLIFLOZIN
  4. METFORMIN HYDROCHLORIDE [Concomitant]
     Active Substance: METFORMIN HYDROCHLORIDE
     Indication: Type 2 diabetes mellitus
     Dosage: 3X1
  5. FOLIC ACID [Concomitant]
     Active Substance: FOLIC ACID
     Dosage: 0-0-1
  6. PERINDOPRIL [Concomitant]
     Active Substance: PERINDOPRIL
     Indication: Hypertension

REACTIONS (6)
  - Sepsis [Unknown]
  - Acute respiratory failure [Unknown]
  - Electrolyte imbalance [Unknown]
  - Immunodeficiency [Unknown]
  - Pneumonia legionella [Unknown]
  - Dehydration [Unknown]

NARRATIVE: CASE EVENT DATE: 20220905
